FAERS Safety Report 6445601 (Version 3)
Quarter: 2012Q4

REPORT INFORMATION
  Report Type: 
  Country: IE (occurrence: IE)
  Receive Date: 20071019
  Receipt Date: 20121119
  Transmission Date: 20130627
  Serious: Yes (Death)
  Sender: FDA-Public Use
  Company Number: IE-PFIZER INC-2007084915

PATIENT
  Age: 61 Year
  Sex: Male

DRUGS (17)
  1. ZYVOX [Suspect]
     Indication: PROPHYLAXIS
     Dosage: UNK
  2. ZOTON [Suspect]
     Indication: PROPHYLAXIS
     Dosage: 30 mg, UNK
     Route: 048
     Dates: start: 20070528, end: 20070709
  3. VANCOMYCIN [Suspect]
     Indication: PROPHYLAXIS
     Dosage: 1 g, 2x/day
     Route: 048
  4. LOSEC [Suspect]
     Indication: PROPHYLAXIS
     Dosage: 40 mg, UNK
     Route: 042
  5. CLEXANE [Suspect]
     Dosage: 40 mg, 1x/day
     Route: 042
  6. ENOXAPARIN SODIUM [Suspect]
     Indication: PROPHYLAXIS
     Dosage: 40 mg, UNK
     Route: 042
  7. DIFENE [Suspect]
     Indication: PROPHYLAXIS
     Dosage: UNK
  8. SEPTRIN FORTE [Suspect]
     Indication: PROPHYLAXIS
     Dosage: UNK
  9. TARGOCID [Suspect]
     Indication: PROPHYLAXIS
     Dosage: UNK
  10. VELOSEF [Suspect]
     Indication: PROPHYLAXIS
     Dosage: UNK
     Dates: start: 20070625, end: 20070626
  11. INNOHEP [Suspect]
     Dosage: UNK
     Dates: start: 20070622
  12. INDAPAMIDE [Concomitant]
     Dosage: UNK
  13. VALSARTAN [Concomitant]
  14. METRONIDAZOLE [Concomitant]
  15. BISOPROLOL [Concomitant]
  16. ASPIRINE [Concomitant]
  17. FUCIDIN [Concomitant]

REACTIONS (1)
  - Toxic epidermal necrolysis [Fatal]
